FAERS Safety Report 10458118 (Version 2)
Quarter: 2014Q3

REPORT INFORMATION
  Report Type: Spontaneous
  Country: ES (occurrence: ES)
  Receive Date: 20140917
  Receipt Date: 20140917
  Transmission Date: 20150326
  Serious: Yes (Other)
  Sender: FDA-Public Use
  Company Number: ES-AMGEN-ESPSP2014025410

PATIENT
  Age: 57 Year
  Sex: Female

DRUGS (5)
  1. METOJECT [Concomitant]
     Active Substance: METHOTREXATE SODIUM
     Dosage: UNK
  2. FOLIC ACID. [Concomitant]
     Active Substance: FOLIC ACID
     Dosage: UNK
  3. ENBREL [Suspect]
     Active Substance: ETANERCEPT
     Dosage: UNK
     Route: 058
  4. INSULIN [Concomitant]
     Active Substance: INSULIN NOS
     Dosage: UNK
  5. ENBREL [Suspect]
     Active Substance: ETANERCEPT
     Indication: RHEUMATOID ARTHRITIS
     Dosage: 50 MG, WEEKLY
     Route: 058

REACTIONS (7)
  - Cataract [Not Recovered/Not Resolved]
  - Injection site haematoma [Not Recovered/Not Resolved]
  - Injection site pruritus [Not Recovered/Not Resolved]
  - Alopecia [Not Recovered/Not Resolved]
  - Injection site erythema [Not Recovered/Not Resolved]
  - Nasopharyngitis [Not Recovered/Not Resolved]
  - Injection site inflammation [Not Recovered/Not Resolved]

NARRATIVE: CASE EVENT DATE: 201403
